FAERS Safety Report 16775193 (Version 1)
Quarter: 2019Q3

REPORT INFORMATION
  Report Type: Report from Study
  Country: DE (occurrence: DE)
  Receive Date: 20190905
  Receipt Date: 20190905
  Transmission Date: 20191005
  Serious: Yes (Other)
  Sender: FDA-Public Use
  Company Number: DE-TEVA-2019-DE-1101332

PATIENT
  Age: 7 Month
  Sex: Male
  Weight: 1.92 kg

DRUGS (9)
  1. LACOSAMIDE EP [Suspect]
     Active Substance: LACOSAMIDE
     Dosage: 200 MG  1 DAYS 100 MG, 2X/DAY (BID)
     Route: 062
  2. LEVETIRACETAM. [Suspect]
     Active Substance: LEVETIRACETAM
     Route: 062
     Dates: start: 20141216, end: 20150727
  3. LEVETIRACETAM. [Suspect]
     Active Substance: LEVETIRACETAM
     Dosage: 750 MG X2 (DAILY DOSE: 1500 MG)
     Route: 062
     Dates: start: 20141127
  4. LEVETIRACETAM. [Suspect]
     Active Substance: LEVETIRACETAM
     Dosage: 1500 MG, 2X/DAY (BID) (1500-0-1500) 3000 MG  1 DAYS
     Route: 064
     Dates: start: 20141215, end: 20141215
  5. PREGABALIN. [Concomitant]
     Active Substance: PREGABALIN
     Dosage: 750  (150-300-300
     Route: 062
     Dates: start: 20141215
  6. PREGABALIN. [Concomitant]
     Active Substance: PREGABALIN
     Dosage: TOTAL: 750 (150-150-150-300)
     Route: 064
     Dates: start: 20141216, end: 20150627
  7. LACOSAMIDE EP [Suspect]
     Active Substance: LACOSAMIDE
     Dosage: 100 MG, ONCE DAILY (QD) 1 DAYS
     Route: 064
     Dates: start: 2014, end: 20141215
  8. LEVETIRACETAM. [Suspect]
     Active Substance: LEVETIRACETAM
     Dosage: 100 MG  1 DAYS
     Route: 062
     Dates: start: 20141216, end: 20141218
  9. LACOSAMIDE EP [Suspect]
     Active Substance: LACOSAMIDE
     Dosage: 100 MG 1 DAYS
     Dates: start: 20141216

REACTIONS (5)
  - Foetal exposure during pregnancy [Unknown]
  - Maternal exposure during pregnancy [Unknown]
  - Exposure via breast milk [Unknown]
  - Low birth weight baby [Unknown]
  - Premature baby [Unknown]

NARRATIVE: CASE EVENT DATE: 20141127
